FAERS Safety Report 4346219-X (Version None)
Quarter: 2004Q2

REPORT INFORMATION
  Report Type: 
  Country: None (occurrence: None)
  Receive Date: 20040426
  Receipt Date: 20040416
  Transmission Date: 20050107
  Serious: Yes (Hospitalization)
  Sender: FDA-Public Use
  Company Number: JP-JNJFOC-20040200974

PATIENT
  Sex: Male

DRUGS (3)
  1. ITRIZOLE [Suspect]
     Indication: ONYCHOMYCOSIS
     Route: 049
  2. VOGLIBOSE [Concomitant]
     Indication: DIABETES MELLITUS
     Route: 049
  3. GLYBURIDE [Concomitant]
     Indication: DIABETES MELLITUS
     Route: 049

REACTIONS (1)
  - RHABDOMYOLYSIS [None]
